FAERS Safety Report 4675807-6 (Version None)
Quarter: 2005Q2

REPORT INFORMATION
  Report Type: 
  Country: None (occurrence: None)
  Receive Date: 20050525
  Receipt Date: 20050509
  Transmission Date: 20051028
  Serious: Yes (Disabling, Other)
  Sender: FDA-Public Use
  Company Number: 8010505

PATIENT
  Age: 73 Year
  Sex: Female

DRUGS (5)
  1. KEPPRA [Suspect]
     Indication: EPILEPSY
     Dosage: 1750 MG /  D PO
     Route: 048
     Dates: start: 20031101
  2. BENDROFLUAZIDE [Concomitant]
  3. PAROXETINE HCL [Concomitant]
  4. ASPIRIN [Concomitant]
  5. SIMVASTATIN [Concomitant]

REACTIONS (1)
  - VISUAL FIELD DEFECT [None]
